FAERS Safety Report 22028475 (Version 2)
Quarter: 2023Q1

REPORT INFORMATION
  Report Type: Report from Study
  Country: CL (occurrence: CL)
  Receive Date: 20230223
  Receipt Date: 20230308
  Transmission Date: 20230417
  Serious: Yes (Other)
  Sender: FDA-Public Use
  Company Number: CL-002147023-NVSC2023CL038084

PATIENT
  Age: 38 Year
  Sex: Female

DRUGS (6)
  1. COSENTYX [Suspect]
     Active Substance: SECUKINUMAB
     Indication: Psoriatic arthropathy
     Dosage: 150 MG, QW
     Route: 058
     Dates: start: 20230126
  2. COSENTYX [Suspect]
     Active Substance: SECUKINUMAB
     Dosage: 150 MG, QW (SECOND DOSE)
     Route: 058
  3. COSENTYX [Suspect]
     Active Substance: SECUKINUMAB
     Dosage: 150 MG, QW (THIRD DOSE)
     Route: 058
  4. COSENTYX [Suspect]
     Active Substance: SECUKINUMAB
     Dosage: 150 MG, QW
     Route: 058
  5. COSENTYX [Suspect]
     Active Substance: SECUKINUMAB
     Dosage: 150 MG
     Route: 065
     Dates: start: 20230223
  6. INDOMETHACIN [Concomitant]
     Active Substance: INDOMETHACIN
     Indication: Product used for unknown indication
     Dosage: 3 DOSAGE FORM, QD (STARTED MORE THAN 2 YEARS)
     Route: 065

REACTIONS (14)
  - Latent tuberculosis [Unknown]
  - Arthralgia [Unknown]
  - Headache [Unknown]
  - Ear pain [Unknown]
  - Joint swelling [Unknown]
  - Skin irritation [Unknown]
  - Liver function test abnormal [Unknown]
  - Tonsillar cyst [Unknown]
  - Contusion [Unknown]
  - Pain in extremity [Unknown]
  - Limb mass [Unknown]
  - Liver function test increased [Unknown]
  - Feeling abnormal [Unknown]
  - Oral herpes [Unknown]
